FAERS Safety Report 23111770 (Version 2)
Quarter: 2023Q4

REPORT INFORMATION
  Report Type: Report from Study
  Country: US (occurrence: US)
  Receive Date: 20231026
  Receipt Date: 20231031
  Transmission Date: 20240110
  Serious: No
  Sender: FDA-Public Use
  Company Number: US-002147023-NVSC2023US224076

PATIENT
  Sex: Male
  Weight: 72.57 kg

DRUGS (5)
  1. COSENTYX [Suspect]
     Active Substance: SECUKINUMAB
     Indication: Psoriasis
     Dosage: 150 MG, QMO
     Route: 065
  2. TRIAMCINOLONE [Suspect]
     Active Substance: TRIAMCINOLONE
     Indication: Psoriasis
     Dosage: UNK
     Route: 065
  3. TACROLIMUS [Suspect]
     Active Substance: TACROLIMUS
     Indication: Psoriasis
     Dosage: UNK
     Route: 061
  4. CLOBETASOL [Suspect]
     Active Substance: CLOBETASOL
     Indication: Product used for unknown indication
     Dosage: UNK
     Route: 065
  5. HALOBETASOL [Suspect]
     Active Substance: HALOBETASOL
     Indication: Product used for unknown indication
     Dosage: UNK
     Route: 065

REACTIONS (26)
  - Psoriasis [Unknown]
  - Skin exfoliation [Unknown]
  - Rash erythematous [Unknown]
  - Pustular psoriasis [Unknown]
  - Erythema [Unknown]
  - Skin hypertrophy [Unknown]
  - Dermatitis [Unknown]
  - Skin plaque [Unknown]
  - Pain in extremity [Unknown]
  - Rash [Unknown]
  - Papule [Unknown]
  - Naevus flammeus [Unknown]
  - Pityriasis rubra pilaris [Unknown]
  - Dyshidrotic eczema [Unknown]
  - Lichen spinulosus [Unknown]
  - Keratosis pilaris [Unknown]
  - Blister [Unknown]
  - Skin fissures [Unknown]
  - Dermatitis atopic [Unknown]
  - Pityriasis rosea [Unknown]
  - Guttate psoriasis [Unknown]
  - Pruritus [Unknown]
  - Dry skin [Unknown]
  - Scab [Unknown]
  - Product dose omission issue [Unknown]
  - Therapeutic product effect incomplete [Unknown]
